FAERS Safety Report 24527987 (Version 1)
Quarter: 2024Q4

REPORT INFORMATION
  Report Type: Spontaneous
  Country: BR (occurrence: BR)
  Receive Date: 20241021
  Receipt Date: 20241021
  Transmission Date: 20250114
  Serious: Yes (Hospitalization, Other)
  Sender: BAYER HEALTHCARE PHARMACEUTICALS INC.
  Company Number: BR-BAYER-2023A168156

PATIENT
  Age: 35 Year
  Sex: Female
  Weight: 73 kg

DRUGS (1)
  1. MIRENA [Suspect]
     Active Substance: LEVONORGESTREL
     Indication: Contraception
     Dosage: 20?G/DAY
     Route: 015
     Dates: end: 20231020

REACTIONS (4)
  - Uterine perforation [Recovered/Resolved with Sequelae]
  - Bursitis [Recovered/Resolved with Sequelae]
  - Genital haemorrhage [Recovered/Resolved with Sequelae]
  - Arthralgia [Not Recovered/Not Resolved]
